FAERS Safety Report 8448642-0 (Version None)
Quarter: 2012Q2

REPORT INFORMATION
  Report Type: 
  Country: None (occurrence: None)
  Receive Date: 20120619
  Receipt Date: 20120611
  Transmission Date: 20120825
  Serious: Yes (Other)
  Sender: FDA-Public Use
  Company Number: US-FRI-1000031238

PATIENT
  Sex: Female
  Weight: 75.75 kg

DRUGS (10)
  1. PRISTIQ [Suspect]
     Indication: CRYING
  2. EFFEXOR XR [Suspect]
     Indication: DEPRESSION
  3. XANAX [Suspect]
     Indication: DEPRESSION
  4. PRISTIQ [Suspect]
     Indication: SUICIDAL IDEATION
  5. CYMBALTA [Suspect]
     Indication: DEPRESSION
  6. LISINOPRIL [Concomitant]
     Indication: HYPERTENSION
  7. PRISTIQ [Suspect]
     Indication: DEPRESSION
  8. LEXAPRO [Suspect]
     Indication: DEPRESSION
  9. WELLBUTRIN [Suspect]
     Indication: DEPRESSION
  10. PROZAC [Suspect]
     Indication: DEPRESSION

REACTIONS (15)
  - HALLUCINATION [None]
  - WEIGHT INCREASED [None]
  - NAUSEA [None]
  - SWELLING [None]
  - BLOOD GLUCOSE INCREASED [None]
  - HIGH DENSITY LIPOPROTEIN INCREASED [None]
  - LOW DENSITY LIPOPROTEIN INCREASED [None]
  - THINKING ABNORMAL [None]
  - SUICIDAL IDEATION [None]
  - DIZZINESS [None]
  - DRUG INEFFECTIVE [None]
  - FLUID RETENTION [None]
  - BLOOD TRIGLYCERIDES INCREASED [None]
  - ABDOMINAL DISCOMFORT [None]
  - MIGRAINE [None]
